FAERS Safety Report 8360701-X (Version None)
Quarter: 2012Q2

REPORT INFORMATION
  Report Type: 
  Country: None (occurrence: None)
  Receive Date: 20120515
  Receipt Date: 20120504
  Transmission Date: 20120825
  Serious: No
  Sender: FDA-Public Use
  Company Number: US-B.I. PHARMACEUTICALS,INC./RIDGEFIELD-2012-BP-10163BP

PATIENT
  Sex: Female

DRUGS (5)
  1. MICARDIS [Suspect]
     Dosage: 40 MG
     Route: 048
     Dates: start: 20120101, end: 20120401
  2. ASCORBIC ACID [Concomitant]
     Indication: PROPHYLAXIS
  3. VITAMIN D [Concomitant]
     Indication: PROPHYLAXIS
  4. MICARDIS [Suspect]
     Route: 048
     Dates: start: 20120401, end: 20120503
  5. MICARDIS [Suspect]
     Indication: HYPERTENSION
     Dosage: 80 MG
     Route: 048
     Dates: start: 20111101, end: 20120101

REACTIONS (8)
  - MUSCLE SPASMS [None]
  - NAUSEA [None]
  - DRY MOUTH [None]
  - DYSPEPSIA [None]
  - URINE OUTPUT INCREASED [None]
  - DECREASED APPETITE [None]
  - HYPERHIDROSIS [None]
  - POLLAKIURIA [None]
